FAERS Safety Report 9725086 (Version 1)
Quarter: 2013Q4

REPORT INFORMATION
  Report Type: Spontaneous
  Country: US (occurrence: US)
  Receive Date: 20131203
  Receipt Date: 20131203
  Transmission Date: 20140711
  Serious: Yes (Hospitalization)
  Sender: FDA-Public Use
  Company Number: US-BIOGENIDEC-2013BI115275

PATIENT
  Sex: Male
  Weight: 121 kg

DRUGS (7)
  1. TYSABRI [Suspect]
     Indication: RELAPSING-REMITTING MULTIPLE SCLEROSIS
     Route: 042
     Dates: start: 20110512, end: 20130411
  2. VICODIN [Concomitant]
  3. ULTRAM [Concomitant]
  4. PEPCID [Concomitant]
  5. AMPYRA [Concomitant]
  6. AMANTADINE [Concomitant]
  7. VITAMIN D3 [Concomitant]
     Route: 048

REACTIONS (1)
  - Multiple sclerosis relapse [Unknown]
